FAERS Safety Report 17835703 (Version 2)
Quarter: 2020Q2

REPORT INFORMATION
  Report Type: Report from Study
  Country: MX (occurrence: MX)
  Receive Date: 20200528
  Receipt Date: 20200617
  Transmission Date: 20200714
  Serious: Yes (Hospitalization, Other)
  Sender: FDA-Public Use
  Company Number: PHHY2014MX095961

PATIENT
  Age: 65 Year
  Sex: Male
  Weight: 76 kg

DRUGS (10)
  1. EXFORGE [Suspect]
     Active Substance: AMLODIPINE BESYLATE\VALSARTAN
     Dosage: 1 (320/5 MG) QD
     Route: 048
  2. EXFORGE [Suspect]
     Active Substance: AMLODIPINE BESYLATE\VALSARTAN
     Indication: HYPERTENSION
     Dosage: 1 DF, QD  (320/5 MG) (5 YEARS AGO)
     Route: 048
  3. ALDACTONE [Concomitant]
     Active Substance: SPIRONOLACTONE
     Indication: ARTERIAL DISORDER
     Dosage: 1 DF (25 MG), QD (ALONG WITH EXFORGE)
     Route: 065
     Dates: start: 201408
  4. ALDACTONE [Concomitant]
     Active Substance: SPIRONOLACTONE
     Dosage: HALF (100 MG)
     Route: 048
  5. OMEPRAZOLE. [Concomitant]
     Active Substance: OMEPRAZOLE
     Indication: GASTRITIS PROPHYLAXIS
     Dosage: 1 OT, QD 3 YEARS AGO
     Route: 048
  6. PANTOPRAZOLE [Concomitant]
     Active Substance: PANTOPRAZOLE
     Indication: GASTRITIS PROPHYLAXIS
     Dosage: 40 MG, QD, 8 MONTHS AGO
     Route: 048
  7. EXFORGE [Suspect]
     Active Substance: AMLODIPINE BESYLATE\VALSARTAN
     Dosage: 1.5 DF (320/10 MG), QD, APPROXIMATELY 1 YEAR AGO
     Route: 048
     Dates: start: 20190214, end: 20190220
  8. RASILEZ [Concomitant]
     Active Substance: ALISKIREN
     Indication: HYPERTENSION
     Dosage: 1 DF, QD (AT NIGHT)
     Route: 065
     Dates: start: 201408
  9. PARACETAMOL [Concomitant]
     Active Substance: ACETAMINOPHEN
     Indication: PRODUCT USED FOR UNKNOWN INDICATION
     Dosage: UNK
     Route: 065
  10. TENORETIC [Concomitant]
     Active Substance: ATENOLOL\CHLORTHALIDONE
     Indication: HYPERTENSION
     Dosage: 1 AT NIGHT 3 YEARS AND HALF AGO
     Route: 048

REACTIONS (18)
  - Blood pressure increased [Not Recovered/Not Resolved]
  - Blood pressure fluctuation [Unknown]
  - Musculoskeletal discomfort [Recovered/Resolved]
  - Off label use [Unknown]
  - Bronchitis [Recovering/Resolving]
  - General physical health deterioration [Unknown]
  - Stress [Unknown]
  - Tension [Unknown]
  - Drug ineffective [Unknown]
  - Renal cancer [Recovering/Resolving]
  - Headache [Unknown]
  - Blood pressure inadequately controlled [Unknown]
  - Allergic cough [Recovering/Resolving]
  - Blood potassium decreased [Recovered/Resolved]
  - Eye pain [Recovered/Resolved]
  - Cholelithiasis [Unknown]
  - Abdominal pain upper [Not Recovered/Not Resolved]
  - Incorrect dose administered [Unknown]

NARRATIVE: CASE EVENT DATE: 2013
